FAERS Safety Report 21446999 (Version 1)
Quarter: 2022Q4

REPORT INFORMATION
  Report Type: Spontaneous
  Country: ES (occurrence: ES)
  Receive Date: 20221012
  Receipt Date: 20221012
  Transmission Date: 20230113
  Serious: Yes (Other)
  Sender: FDA-Public Use
  Company Number: ES-ELI_LILLY_AND_COMPANY-ES202210001146

PATIENT
  Age: 80 Year
  Sex: Female
  Weight: 70 kg

DRUGS (4)
  1. INSULIN GLARGINE [Suspect]
     Active Substance: INSULIN GLARGINE
     Indication: Type 2 diabetes mellitus
     Dosage: UNK UNK, UNKNOWN
     Route: 058
  2. TOUJEO [Suspect]
     Active Substance: INSULIN GLARGINE
     Indication: Type 2 diabetes mellitus
     Dosage: 16 INTERNATIONAL UNIT, DAILY
     Route: 058
     Dates: start: 20200719
  3. LINAGLIPTIN [Concomitant]
     Active Substance: LINAGLIPTIN
     Indication: Type 2 diabetes mellitus
     Route: 048
  4. REPAGLINIDE [Concomitant]
     Active Substance: REPAGLINIDE
     Indication: Type 2 diabetes mellitus
     Route: 048

REACTIONS (8)
  - Chronic kidney disease [Recovering/Resolving]
  - Blindness unilateral [Not Recovered/Not Resolved]
  - Glaucoma [Recovering/Resolving]
  - Diabetic retinopathy [Recovering/Resolving]
  - Hypertension [Recovering/Resolving]
  - Condition aggravated [Not Recovered/Not Resolved]
  - Dyslipidaemia [Recovering/Resolving]
  - Visual impairment [Not Recovered/Not Resolved]
